FAERS Safety Report 20604004 (Version 1)
Quarter: 2022Q1

REPORT INFORMATION
  Report Type: Spontaneous
  Country: US (occurrence: US)
  Receive Date: 20220316
  Receipt Date: 20220316
  Transmission Date: 20220423
  Serious: No
  Sender: FDA-Public Use
  Company Number: US-SA-SAC20220310000324

PATIENT
  Sex: Female

DRUGS (9)
  1. DUPIXENT [Suspect]
     Active Substance: DUPILUMAB
     Indication: Product used for unknown indication
     Dosage: 300 MG/2ML, QOW
     Route: 058
     Dates: start: 20220217
  2. BENADRYL DR [Concomitant]
     Dosage: 60MG
  3. CYMBALTA [Concomitant]
     Active Substance: DULOXETINE HYDROCHLORIDE
     Dosage: 10MG
  4. EZETIMIBE [Concomitant]
     Active Substance: EZETIMIBE
     Dosage: 25MG
  5. GLIPIZIDE [Concomitant]
     Active Substance: GLIPIZIDE
     Dosage: 40MG
  6. JARDIANCE [Concomitant]
     Active Substance: EMPAGLIFLOZIN
     Dosage: 45MG
  7. LISINOPRIL [Concomitant]
     Active Substance: LISINOPRIL
     Dosage: 45MG
  8. PIOGLITAZONE [Concomitant]
     Active Substance: PIOGLITAZONE
     Dosage: 10MG
  9. ZYRTECNO [Concomitant]
     Dosage: 10MG

REACTIONS (1)
  - Injection site urticaria [Recovered/Resolved]

NARRATIVE: CASE EVENT DATE: 20220201
